FAERS Safety Report 16947086 (Version 5)
Quarter: 2020Q2

REPORT INFORMATION
  Report Type: Spontaneous
  Country: US (occurrence: US)
  Receive Date: 20191022
  Receipt Date: 20200511
  Transmission Date: 20200713
  Serious: Yes (Death, Hospitalization)
  Sender: FDA-Public Use
  Company Number: US-ACTELION-A-NJ2019-197080

PATIENT
  Age: 60 Year
  Sex: Female

DRUGS (1)
  1. OPSUMIT [Suspect]
     Active Substance: MACITENTAN
     Indication: PULMONARY ARTERIAL HYPERTENSION
     Dosage: 10 MG, QD
     Route: 048
     Dates: start: 20190612, end: 20191011

REACTIONS (5)
  - Pulse absent [Fatal]
  - Pupil fixed [Fatal]
  - Atrial fibrillation [Unknown]
  - Unresponsive to stimuli [Fatal]
  - Pallor [Fatal]

NARRATIVE: CASE EVENT DATE: 20191011
